FAERS Safety Report 18334885 (Version 1)
Quarter: 2020Q4

REPORT INFORMATION
  Report Type: Spontaneous
  Country: GB (occurrence: GB)
  Receive Date: 20201001
  Receipt Date: 20201001
  Transmission Date: 20210113
  Serious: Yes (Hospitalization, Other)
  Sender: FDA-Public Use
  Company Number: GB-MYLANLABS-2020M1082221

PATIENT
  Age: 54 Year
  Sex: Female
  Weight: 90.09 kg

DRUGS (10)
  1. LANSOPRAZOLE. [Suspect]
     Active Substance: LANSOPRAZOLE
     Indication: OROPHARYNGEAL PAIN
     Dosage: 15 MILLIGRAM
     Route: 048
  2. FOLIC ACID. [Concomitant]
     Active Substance: FOLIC ACID
     Dosage: 5 MILLIGRAM, QD
     Route: 048
     Dates: start: 20200611
  3. PREDNISOLONE. [Concomitant]
     Active Substance: PREDNISOLONE
     Dosage: TAKE AS PER ADVICE FROM CONSULTANT HEAMATOLOGIST (20MG FROM MAY 2020)
     Route: 048
     Dates: start: 20200611
  4. ALENDRONIC ACID [Concomitant]
     Active Substance: ALENDRONIC ACID
     Dosage: 70 MILLIGRAM, QW
     Route: 048
     Dates: start: 20200611
  5. METOCLOPRAMIDE. [Concomitant]
     Active Substance: METOCLOPRAMIDE
     Dosage: 30 MILLIGRAM, QD
     Route: 048
     Dates: start: 20200821
  6. MICONAZOLE. [Concomitant]
     Active Substance: MICONAZOLE
     Dosage: CONTINUE FOR 10 DAYS AFTER ALL RASHES HAVE DISAPPEARED
     Route: 061
     Dates: start: 20200709
  7. ACETYLSALICYLIC ACID [Concomitant]
     Active Substance: ASPIRIN
     Dosage: 75 MILLIGRAM, QD
     Route: 048
     Dates: start: 20200625
  8. PREDNISOLONE. [Concomitant]
     Active Substance: PREDNISOLONE
     Dosage: TAKE AS PER ADVICE FROM CONSULTANT HEAMATOLOGIST (40MG FROM JUNE 2020)
     Route: 048
     Dates: start: 20200625
  9. COTRIMOXAZOLE [Concomitant]
     Active Substance: SULFAMETHOXAZOLE\TRIMETHOPRIM
     Dosage: 1 DOSAGE FORM, QD
     Route: 048
     Dates: start: 20200814
  10. COTRIMOXAZOLE [Concomitant]
     Active Substance: SULFAMETHOXAZOLE\TRIMETHOPRIM
     Dosage: 6 DOSAGE FORM, Q6H
     Route: 048
     Dates: start: 20200819

REACTIONS (2)
  - Hyponatraemia [Recovering/Resolving]
  - Hyponatraemic seizure [Unknown]

NARRATIVE: CASE EVENT DATE: 20200824
